FAERS Safety Report 13652629 (Version 1)
Quarter: 2017Q2

REPORT INFORMATION
  Report Type: Spontaneous
  Country: US (occurrence: US)
  Receive Date: 20170614
  Receipt Date: 20170614
  Transmission Date: 20170830
  Serious: Yes (Other)
  Sender: FDA-Public Use
  Company Number: US-ROCHE-760539

PATIENT
  Sex: Female

DRUGS (3)
  1. TYKERB [Suspect]
     Active Substance: LAPATINIB DITOSYLATE
     Indication: BREAST CANCER METASTATIC
     Route: 048
     Dates: start: 201009, end: 201012
  2. XELODA [Suspect]
     Active Substance: CAPECITABINE
     Indication: BREAST CANCER METASTATIC
     Dosage: TWO WEEKS ON, ONE WEEK OFF
     Route: 048
     Dates: start: 201009, end: 201012
  3. LEVETIRACETAM. [Concomitant]
     Active Substance: LEVETIRACETAM
     Route: 065

REACTIONS (2)
  - Rash [Recovered/Resolved]
  - Urticaria [Recovered/Resolved]
